FAERS Safety Report 5106540-4 (Version None)
Quarter: 2006Q3

REPORT INFORMATION
  Report Type: 
  Country: None (occurrence: None)
  Receive Date: 20060912
  Receipt Date: 20060825
  Transmission Date: 20061208
  Serious: Yes (Other)
  Sender: FDA-Public Use
  Company Number: EC200608006156

PATIENT

DRUGS (1)
  1. PEMETREXED [Suspect]
     Indication: LUNG CANCER METASTATIC

REACTIONS (2)
  - CARDIOPULMONARY FAILURE [None]
  - PULMONARY HAEMORRHAGE [None]
